FAERS Safety Report 9713668 (Version 1)
Quarter: 2013Q4

REPORT INFORMATION
  Report Type: Spontaneous
  Country: US (occurrence: None)
  Receive Date: 20131122
  Receipt Date: 20131122
  Transmission Date: 20140711
  Serious: Yes (Other)
  Sender: FDA-Public Use
  Company Number: ACET20130033

PATIENT
  Age: 26 Year
  Sex: Female

DRUGS (1)
  1. Q-PAP [Suspect]
     Indication: PRODUCT USED FOR UNKNOWN INDICATION
     Route: 048

REACTIONS (5)
  - Acute hepatic failure [None]
  - Toxicity to various agents [None]
  - Hepatitis [None]
  - Coagulopathy [None]
  - Overdose [None]
